FAERS Safety Report 4478369-1 (Version None)
Quarter: 2004Q3

REPORT INFORMATION
  Report Type: 
  Country: None (occurrence: None)
  Receive Date: 20040923
  Receipt Date: 20040728
  Transmission Date: 20050211
  Serious: No
  Sender: FDA-Public Use
  Company Number: USA040670984

PATIENT
  Age: 70 Year
  Sex: Female
  Weight: 61 kg

DRUGS (1)
  1. FORTEO [Suspect]
     Indication: OSTEOPOROSIS
     Dates: start: 20040517

REACTIONS (4)
  - DIZZINESS [None]
  - INJECTION SITE ERYTHEMA [None]
  - MIGRAINE [None]
  - MOVEMENT DISORDER [None]
